FAERS Safety Report 19786068 (Version 4)
Quarter: 2022Q2

REPORT INFORMATION
  Report Type: Spontaneous
  Country: US (occurrence: US)
  Receive Date: 20210903
  Receipt Date: 20220408
  Transmission Date: 20220721
  Serious: Yes (Other)
  Sender: FDA-Public Use
  Company Number: US-PFIZER INC-2021253449

PATIENT
  Age: 82 Year
  Sex: Male
  Weight: 89.81 kg

DRUGS (1)
  1. VYNDAMAX [Suspect]
     Active Substance: TAFAMIDIS
     Indication: Cardiac amyloidosis
     Dosage: 61 MG, 1X/DAY
     Route: 048
     Dates: start: 202101

REACTIONS (5)
  - Tricuspid valve incompetence [Unknown]
  - Hypoacusis [Unknown]
  - Feeling abnormal [Unknown]
  - Dyspnoea [Unknown]
  - General physical health deterioration [Unknown]
